FAERS Safety Report 9171522 (Version 1)
Quarter: 2013Q1

REPORT INFORMATION
  Report Type: Spontaneous
  Country: US (occurrence: US)
  Receive Date: 20130319
  Receipt Date: 20130319
  Transmission Date: 20140127
  Serious: Yes (Hospitalization)
  Sender: FDA-Public Use
  Company Number: US-GLAXOSMITHKLINE-A0781715A

PATIENT
  Age: 45 Year
  Sex: Female

DRUGS (3)
  1. AVANDIA [Suspect]
     Indication: TYPE 2 DIABETES MELLITUS
     Dosage: 8MG PER DAY
     Route: 048
     Dates: start: 200005, end: 200704
  2. CELEBREX [Concomitant]
     Dates: end: 200305
  3. LIPITOR [Concomitant]

REACTIONS (2)
  - Angina pectoris [Not Recovered/Not Resolved]
  - Myocardial infarction [Unknown]
